FAERS Safety Report 17790247 (Version 1)
Quarter: 2020Q2

REPORT INFORMATION
  Report Type: Spontaneous
  Country: AU (occurrence: AU)
  Receive Date: 20200515
  Receipt Date: 20200515
  Transmission Date: 20200714
  Serious: Yes (Hospitalization, Other)
  Sender: FDA-Public Use
  Company Number: AU-LUPIN PHARMACEUTICALS INC.-2020-02160

PATIENT
  Age: 42 Year
  Sex: Female

DRUGS (1)
  1. MISOPROSTOL. [Suspect]
     Active Substance: MISOPROSTOL
     Indication: ABORTION INDUCED
     Dosage: 400 MICROGRAM
     Route: 048

REACTIONS (7)
  - Liver injury [Unknown]
  - Cardiac arrest [Unknown]
  - Brain stem ischaemia [Unknown]
  - Abortion spontaneous incomplete [Unknown]
  - Off label use [Unknown]
  - Renal injury [Unknown]
  - Exposure during pregnancy [Unknown]
